FAERS Safety Report 11646495 (Version 1)
Quarter: 2015Q4

REPORT INFORMATION
  Report Type: Spontaneous
  Country: US (occurrence: US)
  Receive Date: 20151020
  Receipt Date: 20151020
  Transmission Date: 20160304
  Serious: No
  Sender: FDA-Public Use
  Company Number: US-ROCHE-1612679

PATIENT
  Sex: Male

DRUGS (1)
  1. ESBRIET [Suspect]
     Active Substance: PIRFENIDONE
     Indication: IDIOPATHIC PULMONARY FIBROSIS
     Route: 048
     Dates: start: 20150713

REACTIONS (9)
  - Abdominal pain upper [Unknown]
  - Dysuria [Unknown]
  - Nausea [Unknown]
  - Back pain [Unknown]
  - Pyrexia [Unknown]
  - Decreased appetite [Unknown]
  - Asthenia [Unknown]
  - Arthralgia [Unknown]
  - Headache [Unknown]
